FAERS Safety Report 15306351 (Version 3)
Quarter: 2018Q3

REPORT INFORMATION
  Report Type: Report from Study
  Country: US (occurrence: US)
  Receive Date: 20180822
  Receipt Date: 20180906
  Transmission Date: 20181010
  Serious: Yes (Other)
  Sender: FDA-Public Use
  Company Number: US-AMGEN-USASL2018115113

PATIENT
  Age: 57 Year
  Sex: Male

DRUGS (2)
  1. ENBREL [Suspect]
     Active Substance: ETANERCEPT
     Indication: RHEUMATOID ARTHRITIS
     Dosage: 50 MG, QWK
     Route: 065
  2. ENBREL [Suspect]
     Active Substance: ETANERCEPT
     Dosage: 50 MG, QWK
     Route: 065
     Dates: start: 20180815

REACTIONS (12)
  - Nerve injury [Not Recovered/Not Resolved]
  - Sleep disorder due to a general medical condition [Unknown]
  - Injection site erythema [Not Recovered/Not Resolved]
  - Gastric disorder [Unknown]
  - Hernia [Not Recovered/Not Resolved]
  - Pruritus [Not Recovered/Not Resolved]
  - Injection site discharge [Unknown]
  - Injection site pruritus [Not Recovered/Not Resolved]
  - Peripheral swelling [Recovered/Resolved]
  - Injection site swelling [Recovered/Resolved]
  - Abdominal operation [Unknown]
  - Injection site pain [Recovered/Resolved]

NARRATIVE: CASE EVENT DATE: 201808
